FAERS Safety Report 8966203 (Version 3)
Quarter: 2013Q1

REPORT INFORMATION
  Report Type: Spontaneous
  Country: US (occurrence: US)
  Receive Date: 20121217
  Receipt Date: 20130126
  Transmission Date: 20140127
  Serious: Yes (Other)
  Sender: FDA-Public Use
  Company Number: US-009507513-1212USA005522

PATIENT
  Sex: Female

DRUGS (3)
  1. PEGINTRON [Suspect]
     Indication: HEPATITIS C
     Dosage: REDIPEN
     Dates: start: 20121130
  2. RIBAVIRIN [Suspect]
     Indication: HEPATITIS C
     Dosage: UNK
     Dates: start: 20121130
  3. VICTRELIS [Suspect]
     Indication: HEPATITIS C
     Dosage: UNK
     Dates: start: 20121228

REACTIONS (13)
  - Pneumonia [Unknown]
  - Malaise [Unknown]
  - Nausea [Unknown]
  - Thrombocytopenia [Unknown]
  - Asthenia [Unknown]
  - Fatigue [Unknown]
  - Malaise [Unknown]
  - Vomiting [Unknown]
  - Influenza [Unknown]
  - Sinusitis [Unknown]
  - Cough [Unknown]
  - Epistaxis [Unknown]
  - Ear disorder [Unknown]
